FAERS Safety Report 11803876 (Version 2)
Quarter: 2015Q4

REPORT INFORMATION
  Report Type: Spontaneous
  Country: JP (occurrence: JP)
  Receive Date: 20151204
  Receipt Date: 20151210
  Transmission Date: 20160305
  Serious: Yes (Death, Life-Threatening, Hospitalization, Other)
  Sender: FDA-Public Use
  Company Number: JP-B.I. PHARMACEUTICALS,INC./RIDGEFIELD-2015-BI-40292NB

PATIENT
  Age: 71 Year
  Sex: Male
  Weight: 46 kg

DRUGS (13)
  1. GILOTRIF [Suspect]
     Active Substance: AFATINIB
     Dosage: 40 MG
     Route: 048
     Dates: start: 20150508, end: 20150514
  2. HARNAL [Concomitant]
     Active Substance: TAMSULOSIN HYDROCHLORIDE
     Indication: BENIGN PROSTATIC HYPERPLASIA
     Dosage: 0.2 MG
     Route: 048
     Dates: start: 2013
  3. OXINORM [Concomitant]
     Active Substance: OXYCODONE HYDROCHLORIDE
     Indication: LUNG NEOPLASM MALIGNANT
     Dosage: 5 MG
     Route: 048
     Dates: start: 20150303
  4. GILOTRIF [Suspect]
     Active Substance: AFATINIB
     Indication: LUNG NEOPLASM MALIGNANT
     Dosage: 40 MG
     Route: 048
     Dates: start: 20150303, end: 20150430
  5. LOXOPROFEN [Concomitant]
     Active Substance: LOXOPROFEN
     Indication: LUNG NEOPLASM MALIGNANT
     Dosage: 180 MG
     Route: 048
     Dates: start: 2013
  6. LUPRAC [Concomitant]
     Active Substance: TORSEMIDE
     Indication: LUNG NEOPLASM MALIGNANT
     Dosage: 2 MG
     Route: 048
     Dates: start: 20150616
  7. GILOTRIF [Suspect]
     Active Substance: AFATINIB
     Dosage: 30 MG
     Route: 048
     Dates: start: 20150525, end: 20150701
  8. CALONAL [Concomitant]
     Active Substance: ACETAMINOPHEN
     Indication: LUNG NEOPLASM MALIGNANT
     Dosage: 1200 MG
     Route: 048
     Dates: start: 2013
  9. PRAMIEL [Concomitant]
     Indication: LUNG NEOPLASM MALIGNANT
     Dosage: 10 MG
     Route: 048
     Dates: start: 20150611
  10. TAKEPRON [Concomitant]
     Active Substance: LANSOPRAZOLE
     Indication: LUNG NEOPLASM MALIGNANT
     Dosage: 15 MG
     Route: 048
     Dates: start: 2013
  11. OXYCONTIN [Concomitant]
     Active Substance: OXYCODONE HYDROCHLORIDE
     Indication: LUNG NEOPLASM MALIGNANT
     Dosage: 30 MG
     Route: 048
     Dates: start: 20150303
  12. XYZAL [Concomitant]
     Active Substance: LEVOCETIRIZINE DIHYDROCHLORIDE
     Indication: LUNG NEOPLASM MALIGNANT
     Dosage: 5 MG
     Route: 048
     Dates: start: 20150402
  13. MUCOSTA [Concomitant]
     Active Substance: REBAMIPIDE
     Indication: LUNG NEOPLASM MALIGNANT
     Dosage: 300 MG
     Route: 048
     Dates: start: 2013

REACTIONS (4)
  - Interstitial lung disease [Not Recovered/Not Resolved]
  - Cerebral haemorrhage [Fatal]
  - Lymphangiosis carcinomatosa [Unknown]
  - Metastases to central nervous system [Unknown]

NARRATIVE: CASE EVENT DATE: 20150701
